FAERS Safety Report 4705502-6 (Version None)
Quarter: 2005Q3

REPORT INFORMATION
  Report Type: 
  Country: None (occurrence: None)
  Receive Date: 20050701
  Receipt Date: 20050622
  Transmission Date: 20060218
  Serious: Yes (Other)
  Sender: FDA-Public Use
  Company Number: PHBS2005BE09174

PATIENT
  Age: 69 Year
  Sex: Female
  Weight: 71 kg

DRUGS (4)
  1. ELTHYRONE [Concomitant]
     Route: 065
  2. XANAX [Concomitant]
     Route: 065
     Dates: start: 20041101
  3. TEMESTA [Concomitant]
     Route: 065
     Dates: start: 20030701
  4. ZOMETA [Suspect]
     Indication: METASTASES TO BONE
     Dosage: 4 MG, QMO
     Route: 042
     Dates: start: 20021009, end: 20050330

REACTIONS (4)
  - ASEPTIC NECROSIS BONE [None]
  - BONE DENSITY INCREASED [None]
  - METASTASES TO BONE [None]
  - OSTEONECROSIS [None]
